FAERS Safety Report 22521432 (Version 1)
Quarter: 2023Q2

REPORT INFORMATION
  Report Type: Spontaneous
  Country: US (occurrence: None)
  Receive Date: 20230602
  Receipt Date: 20230602
  Transmission Date: 20230722
  Serious: No
  Sender: FDA-Public Use
  Company Number: None

PATIENT
  Sex: Female

DRUGS (1)
  1. XELJANZ XR [Suspect]
     Active Substance: TOFACITINIB CITRATE
     Indication: Arthropathy
     Dosage: FREQUENCY : DAILY;?
     Route: 048
     Dates: start: 20230309, end: 20230526

REACTIONS (7)
  - Drug ineffective [None]
  - Headache [None]
  - Dizziness [None]
  - Pollakiuria [None]
  - Fatigue [None]
  - Myalgia [None]
  - Abdominal pain upper [None]
